FAERS Safety Report 4585983-1 (Version None)
Quarter: 2005Q1

REPORT INFORMATION
  Report Type: 
  Country: None (occurrence: None)
  Receive Date: 20050125
  Receipt Date: 20041011
  Transmission Date: 20050727
  Serious: No
  Sender: FDA-Public Use
  Company Number: USA040568209

PATIENT
  Age: 77 Year
  Sex: Female
  Weight: 55 kg

DRUGS (5)
  1. FORTEO [Suspect]
     Indication: OSTEOPOROSIS
     Dosage: 20 UG/1 DAY
     Dates: start: 20031016, end: 20040524
  2. ZOCOR [Concomitant]
  3. DETROL [Concomitant]
  4. PRILOSEC [Concomitant]
  5. TOFRANIL [Concomitant]

REACTIONS (1)
  - TOOTH INJURY [None]
